FAERS Safety Report 14339456 (Version 1)
Quarter: 2017Q4

REPORT INFORMATION
  Report Type: Spontaneous
  Country: US (occurrence: US)
  Receive Date: 20171230
  Receipt Date: 20171230
  Transmission Date: 20180321
  Serious: Yes (Other)
  Sender: FDA-Public Use
  Company Number: US-BAXTER-2017BAX045314

PATIENT
  Age: 1 Day
  Sex: Male

DRUGS (3)
  1. MILRINONE LACTATE IN 5% DEXTROSE INJECTION [Suspect]
     Active Substance: MILRINONE LACTATE
     Indication: RESPIRATORY FAILURE
     Route: 065
     Dates: start: 20170428, end: 20170501
  2. REMIFENTANIL HYDROCHLORIDE. [Suspect]
     Active Substance: REMIFENTANIL HYDROCHLORIDE
     Indication: RESPIRATORY FAILURE
     Route: 065
     Dates: start: 20170427, end: 20170501
  3. INOMAX [Suspect]
     Active Substance: NITRIC OXIDE
     Indication: PERSISTENT FOETAL CIRCULATION
     Route: 065
     Dates: start: 20170428, end: 20170502

REACTIONS (2)
  - Jaundice neonatal [Recovered/Resolved]
  - Neonatal hypotension [Recovered/Resolved]

NARRATIVE: CASE EVENT DATE: 20170428
